FAERS Safety Report 5149973-2 (Version None)
Quarter: 2006Q4

REPORT INFORMATION
  Report Type: 
  Country: None (occurrence: None)
  Receive Date: 20061113
  Receipt Date: 20061029
  Transmission Date: 20070319
  Serious: Yes (Disabling, Other)
  Sender: FDA-Public Use
  Company Number: US-ALLERGAN-0606873US

PATIENT
  Sex: Female

DRUGS (1)
  1. BOTOX [Suspect]
     Indication: MUSCLE SPASMS
     Dosage: 300 UNITS, SINGLE
     Route: 030
     Dates: start: 20060501

REACTIONS (3)
  - HEMIPARESIS [None]
  - MASS [None]
  - PAIN [None]
